FAERS Safety Report 6747681-5 (Version None)
Quarter: 2010Q2

REPORT INFORMATION
  Report Type: 
  Country: None (occurrence: None)
  Receive Date: 20100528
  Receipt Date: 20100518
  Transmission Date: 20101027
  Serious: Yes (Other)
  Sender: FDA-Public Use
  Company Number: JP-ELI_LILLY_AND_COMPANY-JP201005004680

PATIENT
  Sex: Male
  Weight: 119 kg

DRUGS (6)
  1. ZYPREXA [Suspect]
     Indication: SCHIZOPHRENIA
     Dosage: 20 MG, DAILY (1/D)
     Route: 048
  2. ZYPREXA [Suspect]
     Dosage: 10 MG, DAILY (1/D)
     Route: 048
     Dates: start: 20090315, end: 20100401
  3. LULLAN [Concomitant]
     Indication: SCHIZOPHRENIA
     Dosage: 48 MG, DAILY (1/D)
     Route: 048
     Dates: start: 20070512
  4. LEXOTAN [Concomitant]
     Dosage: 6 MG, DAILY (1/D)
     Route: 048
  5. ROHYPNOL [Concomitant]
     Indication: INSOMNIA
     Dosage: 4 MG, DAILY (1/D)
     Route: 048
  6. GOODMIN [Concomitant]
     Indication: INSOMNIA
     Dosage: 0.5 MG, DAILY (1/D)
     Route: 048

REACTIONS (4)
  - DIABETES MELLITUS [None]
  - HYPERPHAGIA [None]
  - POLYDIPSIA [None]
  - WEIGHT INCREASED [None]
